FAERS Safety Report 16787937 (Version 1)
Quarter: 2019Q3

REPORT INFORMATION
  Report Type: Report from Study
  Country: US (occurrence: US)
  Receive Date: 20190909
  Receipt Date: 20190909
  Transmission Date: 20191005
  Serious: Yes (Hospitalization)
  Sender: FDA-Public Use
  Company Number: US-TAKEDA-2019TUS051305

PATIENT
  Age: 65 Year
  Sex: Female

DRUGS (1)
  1. PONATINIB [Suspect]
     Active Substance: PONATINIB
     Indication: CHRONIC MYELOID LEUKAEMIA
     Dosage: 45 MILLIGRAM, QD
     Route: 048
     Dates: start: 20190822

REACTIONS (6)
  - Pancreatic disorder [Unknown]
  - Abdominal pain [Unknown]
  - Skin exfoliation [Unknown]
  - Lip blister [Unknown]
  - Rash pruritic [Unknown]
  - Dry skin [Unknown]

NARRATIVE: CASE EVENT DATE: 201908
